FAERS Safety Report 11689738 (Version 1)
Quarter: 2015Q4

REPORT INFORMATION
  Report Type: Spontaneous
  Country: None (occurrence: None)
  Receive Date: 20151030
  Receipt Date: 20151030
  Transmission Date: 20160304
  Serious: Yes (Life-Threatening, Other)
  Sender: FDA-Public Use
  Company Number: None

PATIENT
  Age: 24 Year
  Sex: Female
  Weight: 53 kg

DRUGS (1)
  1. VENOFER [Suspect]
     Active Substance: IRON SUCROSE
     Indication: ANAEMIA
     Route: 042
     Dates: start: 20150925

REACTIONS (10)
  - Burning sensation [None]
  - Fatigue [None]
  - Heart rate increased [None]
  - Rash [None]
  - Mouth swelling [None]
  - Cough [None]
  - Dyspnoea [None]
  - Vomiting [None]
  - Peripheral swelling [None]
  - Anxiety [None]

NARRATIVE: CASE EVENT DATE: 20150925
